FAERS Safety Report 5594209-1 (Version None)
Quarter: 2008Q1

REPORT INFORMATION
  Report Type: 
  Country: None (occurrence: None)
  Receive Date: 20080115
  Receipt Date: 20071220
  Transmission Date: 20080703
  Serious: Yes (Hospitalization)
  Sender: FDA-Public Use
  Company Number: S08-NOR-00119-01

PATIENT
  Age: 78 Year
  Sex: Female

DRUGS (11)
  1. ESCITALOPRAM [Suspect]
     Indication: DEPRESSION
     Dosage: 10 MG QD PO
     Route: 048
     Dates: start: 20070101, end: 20071214
  2. TRILAFON [Suspect]
     Indication: HALLUCINATION
     Dosage: 4 MG QOD
     Dates: start: 20070501, end: 20071215
  3. EXELON [Suspect]
     Indication: DEMENTIA
     Dosage: 3 MG QOD
     Dates: start: 20071106
  4. SEROQUEL [Suspect]
     Dosage: 50 MG QD
     Dates: start: 20070501, end: 20071215
  5. DUROFERON (FERROUS SULFATE) [Concomitant]
  6. AKINETON [Concomitant]
  7. VI-SIBLIN [Concomitant]
  8. NEXIUM [Concomitant]
  9. ZOPICLONE [Concomitant]
  10. EVISTA (RALOXINE HYDROCHLORIDE) [Concomitant]
  11. DUPHALAC [Concomitant]

REACTIONS (4)
  - BALANCE DISORDER [None]
  - BRADYKINESIA [None]
  - COGNITIVE DISORDER [None]
  - EXTRAPYRAMIDAL DISORDER [None]
